FAERS Safety Report 10348306 (Version 1)
Quarter: 2014Q3

REPORT INFORMATION
  Report Type: Spontaneous
  Country: IT (occurrence: IT)
  Receive Date: 20140729
  Receipt Date: 20140729
  Transmission Date: 20150326
  Serious: Yes (Other)
  Sender: FDA-Public Use
  Company Number: IT-TEVA-495759ISR

PATIENT
  Age: 49 Year
  Sex: Female

DRUGS (2)
  1. CARBOPLATINO TEVA [Suspect]
     Active Substance: CARBOPLATIN
     Indication: OVARIAN CANCER
     Dosage: 420 MILLIGRAM DAILY;
     Route: 042
     Dates: start: 20140130, end: 20140220
  2. GEMCITABINA CLORIDRATO [Concomitant]
     Indication: OVARIAN CANCER
     Dosage: 1790 MILLIGRAM DAILY;
     Route: 042
     Dates: start: 20140130, end: 20140317

REACTIONS (4)
  - Dyspnoea [Recovered/Resolved]
  - Rash [Recovered/Resolved]
  - Feeling hot [Recovered/Resolved]
  - Hyperhidrosis [Recovered/Resolved]

NARRATIVE: CASE EVENT DATE: 20140220
